FAERS Safety Report 16014733 (Version 1)
Quarter: 2019Q1

REPORT INFORMATION
  Report Type: Spontaneous
  Country: US (occurrence: US)
  Receive Date: 20190227
  Receipt Date: 20190227
  Transmission Date: 20190418
  Serious: No
  Sender: FDA-Public Use
  Company Number: US-GLAXOSMITHKLINE-US2019032536

PATIENT
  Age: 75 Year
  Sex: Female

DRUGS (4)
  1. SYMBICORT [Suspect]
     Active Substance: BUDESONIDE\FORMOTEROL FUMARATE DIHYDRATE
     Indication: ASTHMA
     Dosage: 2 PUFF(S), BID
  2. ADVAIR HFA [Suspect]
     Active Substance: FLUTICASONE PROPIONATE\SALMETEROL XINAFOATE
     Indication: BRONCHITIS
  3. ADVAIR HFA [Suspect]
     Active Substance: FLUTICASONE PROPIONATE\SALMETEROL XINAFOATE
     Indication: ASTHMA
     Dosage: 2 PUFF(S), BID
     Route: 055
     Dates: start: 2017
  4. SYMBICORT [Suspect]
     Active Substance: BUDESONIDE\FORMOTEROL FUMARATE DIHYDRATE
     Indication: BRONCHITIS

REACTIONS (18)
  - Asthenia [Recovering/Resolving]
  - Eye discharge [Unknown]
  - Immune system disorder [Unknown]
  - Lacrimation increased [Unknown]
  - Chest discomfort [Unknown]
  - Eye disorder [Unknown]
  - Lower respiratory tract congestion [Unknown]
  - Wrong technique in device usage process [Unknown]
  - Drug ineffective [Unknown]
  - Dyspnoea [Unknown]
  - Malaise [Unknown]
  - Vision blurred [Unknown]
  - Bronchitis [Unknown]
  - Candida infection [Unknown]
  - Abnormal sensation in eye [Unknown]
  - Eye pain [Unknown]
  - Product use in unapproved indication [Unknown]
  - Product communication issue [Unknown]

NARRATIVE: CASE EVENT DATE: 201808
